FAERS Safety Report 4524744-6 (Version None)
Quarter: 2004Q4

REPORT INFORMATION
  Report Type: 
  Country: None (occurrence: None)
  Receive Date: 20041209
  Receipt Date: 20041130
  Transmission Date: 20050328
  Serious: Yes (Hospitalization)
  Sender: FDA-Public Use
  Company Number: STA-AE-04-MTX-600

PATIENT
  Age: 66 Year
  Sex: Female

DRUGS (5)
  1. METHOTREXATE [Suspect]
     Indication: RHEUMATOID ARTHRITIS
     Dosage: 15 MG 1 X PER 1 WK, ORAL
     Route: 048
     Dates: start: 20031215, end: 20040101
  2. HUMIRA [Suspect]
     Indication: RHEUMATOID ARTHRITIS
     Dosage: 40 MG 2 X PER 1 MTH, SC
     Route: 058
     Dates: start: 20031215, end: 20040923
  3. ATENOLOL [Concomitant]
  4. BUMETANIDE [Concomitant]
  5. AMLODIPINE BESYLATE [Concomitant]

REACTIONS (10)
  - ABDOMINAL PAIN [None]
  - ANOREXIA [None]
  - BLOOD CREATININE INCREASED [None]
  - CHILLS [None]
  - CYTOLYTIC HEPATITIS [None]
  - CYTOMEGALOVIRUS ANTIBODY POSITIVE [None]
  - DYSPNOEA [None]
  - LEGIONELLA INFECTION [None]
  - LUNG DISORDER [None]
  - WEIGHT DECREASED [None]
